FAERS Safety Report 19683722 (Version 1)
Quarter: 2021Q3

REPORT INFORMATION
  Report Type: Report from Study
  Country: US (occurrence: US)
  Receive Date: 20210811
  Receipt Date: 20210811
  Transmission Date: 20211014
  Serious: Yes (Other)
  Sender: FDA-Public Use
  Company Number: US-SA-2021SA139300

PATIENT
  Age: 68 Year
  Sex: Female

DRUGS (4)
  1. PREDNISONE. [Concomitant]
     Active Substance: PREDNISONE
     Indication: POLYMYOSITIS
  2. TERIFLUNOMIDE. [Suspect]
     Active Substance: TERIFLUNOMIDE
     Dosage: 14 MG, QD
     Route: 048
     Dates: start: 20200121
  3. PREDNISONE. [Concomitant]
     Active Substance: PREDNISONE
     Indication: MUSCLE DISORDER
  4. TERIFLUNOMIDE. [Suspect]
     Active Substance: TERIFLUNOMIDE
     Indication: MULTIPLE SCLEROSIS
     Dosage: 14 MG, QD
     Route: 048
     Dates: start: 20151012, end: 20180101

REACTIONS (15)
  - Gait disturbance [Not Recovered/Not Resolved]
  - Feeling abnormal [Unknown]
  - Condition aggravated [Not Recovered/Not Resolved]
  - Peripheral swelling [Not Recovered/Not Resolved]
  - Confusional state [Unknown]
  - Osteoporosis [Not Recovered/Not Resolved]
  - Basedow^s disease [Not Recovered/Not Resolved]
  - Joint swelling [Not Recovered/Not Resolved]
  - Pain in extremity [Not Recovered/Not Resolved]
  - Pituitary-dependent Cushing^s syndrome [Unknown]
  - Peripheral artery occlusion [Not Recovered/Not Resolved]
  - Stress [Not Recovered/Not Resolved]
  - Fatigue [Not Recovered/Not Resolved]
  - Bone pain [Not Recovered/Not Resolved]
  - Cystitis [Unknown]

NARRATIVE: CASE EVENT DATE: 2020
